FAERS Safety Report 17631565 (Version 4)
Quarter: 2020Q2

REPORT INFORMATION
  Report Type: Spontaneous
  Country: US (occurrence: US)
  Receive Date: 20200406
  Receipt Date: 20200506
  Transmission Date: 20200713
  Serious: No
  Sender: FDA-Public Use
  Company Number: US-VERTEX PHARMACEUTICALS-2020-004594

PATIENT
  Age: 16 Year
  Sex: Male
  Weight: 59 kg

DRUGS (20)
  1. MELATONIN [Concomitant]
     Active Substance: MELATONIN
     Dosage: 1 DOSAGE FORM
     Route: 048
  2. TRIKAFTA [Suspect]
     Active Substance: ELEXACAFTOR\IVACAFTOR\TEZACAFTOR
     Indication: CYSTIC FIBROSIS
     Dosage: 2 TABS (100MG ELEXACAFTOR/50MG TEZACAFTOR/75MG IVACAFTOR) AM AND 1 TAB (150MG IVACAFTOR) PM
     Route: 048
     Dates: start: 20200120
  3. PULMOZYME [Concomitant]
     Active Substance: DORNASE ALFA
     Dosage: 2.5 MILLILITER
  4. HYDROXYZINE HYDROCHLORIDE. [Concomitant]
     Active Substance: HYDROXYZINE HYDROCHLORIDE
     Indication: ANXIETY
     Dosage: 2 DOSAGE FORM, TID
     Route: 048
  5. TOBRAMYCIN. [Concomitant]
     Active Substance: TOBRAMYCIN
     Dosage: 4 DOSAGE FORM, BID
  6. GLUCAGON. [Concomitant]
     Active Substance: GLUCAGON
     Indication: SEIZURE
  7. ADALAT CC [Concomitant]
     Active Substance: NIFEDIPINE
     Dosage: 1 DOSAGE FORM, QD
     Route: 048
  8. BISACODYL. [Concomitant]
     Active Substance: BISACODYL
  9. SODIUM PHOSPHATE DIBASIC (HEPTAHYDRATE);SODIUM PHOSPHATE MONOBASIC [Concomitant]
  10. CALTRATE 600+D [Concomitant]
     Dosage: 1 DOSAGE FORM, QD
     Route: 048
  11. LANTUS [Concomitant]
     Active Substance: INSULIN GLARGINE
  12. HYPERSAL [Concomitant]
     Active Substance: SODIUM CHLORIDE
  13. VITAMIN D3 [Concomitant]
     Active Substance: CHOLECALCIFEROL
     Dosage: 5 DOSAGE FORM, QD
     Route: 048
  14. ALBUTEROL [SALBUTAMOL] [Concomitant]
     Active Substance: ALBUTEROL
     Indication: WHEEZING
  15. ALBUTEROL [SALBUTAMOL] [Concomitant]
     Active Substance: ALBUTEROL
     Indication: DYSPNOEA
  16. ZENPEP [Concomitant]
     Active Substance: PANCRELIPASE AMYLASE\PANCRELIPASE LIPASE\PANCRELIPASE PROTEASE
  17. GLUCAGON. [Concomitant]
     Active Substance: GLUCAGON
     Indication: LOSS OF CONSCIOUSNESS
  18. NOVOLOG [Concomitant]
     Active Substance: INSULIN ASPART
  19. MIRALAX [Concomitant]
     Active Substance: POLYETHYLENE GLYCOL 3350
     Dosage: 17 GRAM, BID
     Route: 048
  20. ZOLOFT [Concomitant]
     Active Substance: SERTRALINE HYDROCHLORIDE
     Dosage: 1.5 GRAM, QD
     Route: 048

REACTIONS (1)
  - Dyspnoea [Recovered/Resolved]

NARRATIVE: CASE EVENT DATE: 20200326
